FAERS Safety Report 5005802-9 (Version None)
Quarter: 2006Q1

REPORT INFORMATION
  Report Type: 
  Country: None (occurrence: None)
  Receive Date: 20060321
  Receipt Date: 20051021
  Transmission Date: 20060701
  Serious: Yes (Disabling)
  Sender: FDA-Public Use
  Company Number: 2005134026

PATIENT
  Age: 62 Year
  Sex: Female
  Weight: 79.3795 kg

DRUGS (7)
  1. XALATAN [Suspect]
     Indication: GLAUCOMA
     Dosage: OPHTHALMIC
     Route: 047
     Dates: start: 20040301, end: 20050920
  2. AGRYLIN (ANAGRELIDE HYDRODHLORIDE) [Concomitant]
  3. LISINOPRIL [Concomitant]
  4. ASPIRIN [Concomitant]
  5. PREVACID [Concomitant]
  6. MULTIVITAMIN [Concomitant]
  7. COSOPT [Concomitant]

REACTIONS (6)
  - EYE IRRITATION [None]
  - INSOMNIA [None]
  - NASOPHARYNGITIS [None]
  - PAIN IN EXTREMITY [None]
  - SHOULDER PAIN [None]
  - SPEECH DISORDER [None]
